FAERS Safety Report 24412147 (Version 2)
Quarter: 2024Q4

REPORT INFORMATION
  Report Type: Report from Study
  Country: AR (occurrence: AR)
  Receive Date: 20241008
  Receipt Date: 20241009
  Transmission Date: 20250115
  Serious: No
  Sender: ASTELLAS
  Company Number: AR-MONTEVERDE-AR-0629-20240927

PATIENT
  Age: 59 Year
  Sex: Male

DRUGS (1)
  1. ENFORTUMAB VEDOTIN-EJFV [Suspect]
     Active Substance: ENFORTUMAB VEDOTIN-EJFV
     Indication: Transitional cell cancer of the renal pelvis and ureter
     Route: 042
     Dates: start: 20240315

REACTIONS (2)
  - Blister [Recovering/Resolving]
  - Off label use [Unknown]

NARRATIVE: CASE EVENT DATE: 20240315
